FAERS Safety Report 24529248 (Version 2)
Quarter: 2024Q4

REPORT INFORMATION
  Report Type: Spontaneous
  Country: FR (occurrence: FR)
  Receive Date: 20241021
  Receipt Date: 20241112
  Transmission Date: 20250115
  Serious: Yes (Hospitalization)
  Sender: FRESENIUS KABI
  Company Number: None

PATIENT
  Age: 35 Year
  Sex: Female
  Weight: 54.5 kg

DRUGS (4)
  1. LIDOCAINE [Suspect]
     Active Substance: LIDOCAINE
     Indication: Colonoscopy
     Dosage: UNK?ROA: INTRAVENOUS
     Dates: start: 20241001, end: 20241001
  2. LIDOCAINE [Suspect]
     Active Substance: LIDOCAINE
     Dosage: UNK?ROA: INTRAVENOUS
     Dates: start: 20241001, end: 20241001
  3. LIDOCAINE [Suspect]
     Active Substance: LIDOCAINE
     Dosage: UNK?ROA: INTRAVENOUS
     Dates: start: 20241001, end: 20241001
  4. LIDOCAINE [Suspect]
     Active Substance: LIDOCAINE
     Dosage: UNK?ROA: INTRAVENOUS
     Dates: start: 20241001, end: 20241001

REACTIONS (3)
  - Rash [Recovered/Resolved]
  - Contraindicated product prescribed [Recovered/Resolved]
  - Product prescribing error [Recovered/Resolved]

NARRATIVE: CASE EVENT DATE: 20241001
